FAERS Safety Report 23304804 (Version 1)
Quarter: 2023Q4

REPORT INFORMATION
  Report Type: Spontaneous
  Country: US (occurrence: US)
  Receive Date: 20231218
  Receipt Date: 20231218
  Transmission Date: 20240109
  Serious: Yes (Other)
  Sender: FDA-Public Use
  Company Number: US-JNJFOC-20231215686

PATIENT

DRUGS (3)
  1. IMBRUVICA [Suspect]
     Active Substance: IBRUTINIB
     Indication: Follicular lymphoma
     Dosage: ON DAY 1 (? 2 DAYS) OF CYCLE 1
     Route: 048
  2. OBINUTUZUMAB [Suspect]
     Active Substance: OBINUTUZUMAB
     Indication: Follicular lymphoma
     Dosage: ON DAYS 1, 8 (? 2 DAYS), AND 15 (? 2 DAYS) OF CYCLE 1, DAY 1 (?7 DAYS) OF CYCLES 2 THROUGH 6, THEN
     Route: 042
  3. VENETOCLAX [Suspect]
     Active Substance: VENETOCLAX
     Indication: Follicular lymphoma
     Dosage: ON DAY 4 (? 2 DAYS) OF CYCLE 1
     Route: 065

REACTIONS (7)
  - Thrombocytopenia [Unknown]
  - Rash [Unknown]
  - Diarrhoea [Unknown]
  - Lymphopenia [Unknown]
  - Off label use [Unknown]
  - Fatigue [Unknown]
  - Neutropenia [Unknown]
